FAERS Safety Report 7321136-1 (Version None)
Quarter: 2011Q1

REPORT INFORMATION
  Report Type: 
  Country: None (occurrence: None)
  Receive Date: 20110228
  Receipt Date: 20110218
  Transmission Date: 20110831
  Serious: Yes (Hospitalization)
  Sender: FDA-Public Use
  Company Number: US-JNJFOC-20110206224

PATIENT

DRUGS (1)
  1. ARESTIN [Suspect]
     Indication: PRODUCT USED FOR UNKNOWN INDICATION
     Route: 065

REACTIONS (3)
  - INTERSTITIAL LUNG DISEASE [None]
  - ADVERSE EVENT [None]
  - ARTHRALGIA [None]
